FAERS Safety Report 6506476-8 (Version None)
Quarter: 2009Q4

REPORT INFORMATION
  Report Type: 
  Country: None (occurrence: None)
  Receive Date: 20091221
  Receipt Date: 20091209
  Transmission Date: 20100525
  Serious: Yes (Hospitalization)
  Sender: FDA-Public Use
  Company Number: BR-BIOGENIDEC-2009BI038245

PATIENT
  Sex: Female

DRUGS (2)
  1. AVONEX [Suspect]
     Indication: MULTIPLE SCLEROSIS
     Route: 030
     Dates: start: 20091114, end: 20091101
  2. AVONEX [Suspect]
     Route: 030
     Dates: start: 20091205

REACTIONS (7)
  - BACK PAIN [None]
  - DIARRHOEA [None]
  - EAR PAIN [None]
  - FRUSTRATION [None]
  - GASTRITIS [None]
  - INFLUENZA LIKE ILLNESS [None]
  - PAIN [None]
